FAERS Safety Report 7216464-4 (Version None)
Quarter: 2011Q1

REPORT INFORMATION
  Report Type: 
  Country: None (occurrence: None)
  Receive Date: 20110107
  Receipt Date: 20101227
  Transmission Date: 20110831
  Serious: Yes (Death, Other)
  Sender: FDA-Public Use
  Company Number: JP-NAPPMUNDI-MAG-2010-0001264

PATIENT
  Sex: Female

DRUGS (18)
  1. RIZABEN [Concomitant]
     Indication: IDIOPATHIC PULMONARY FIBROSIS
     Dosage: 300 MG, DAILY
     Route: 048
  2. MAGLAX [Concomitant]
     Indication: IDIOPATHIC PULMONARY FIBROSIS
     Dosage: 1980 MG, DAILY
     Route: 048
  3. NOVAMIN                            /00013301/ [Concomitant]
     Indication: IDIOPATHIC PULMONARY FIBROSIS
     Dosage: 5 MG, DAILY
     Route: 048
     Dates: start: 20091125, end: 20091224
  4. OXYCODONE HYDROCHLORIDE [Suspect]
     Indication: IDIOPATHIC PULMONARY FIBROSIS
     Dosage: 5 MG, PRN
     Route: 048
     Dates: start: 20091125, end: 20091224
  5. OXYCODONE HYDROCHLORIDE [Suspect]
     Indication: COUGH
  6. SPIRIVA [Concomitant]
     Indication: IDIOPATHIC PULMONARY FIBROSIS
     Dosage: 18 MCG, DAILY
     Route: 048
  7. ACINON [Concomitant]
     Indication: IDIOPATHIC PULMONARY FIBROSIS
     Dosage: 150 MG, DAILY
     Route: 048
  8. OXYCODONE HYDROCHLORIDE [Suspect]
     Indication: DYSPNOEA
  9. MORPHINE [Suspect]
     Indication: IDIOPATHIC PULMONARY FIBROSIS
     Dosage: 10 MG, PRN
     Route: 048
     Dates: start: 20091124, end: 20091124
  10. PIRESPA [Concomitant]
     Dosage: 400 MG, TID
     Route: 048
     Dates: start: 20090729, end: 20091007
  11. FAROM [Concomitant]
     Dosage: 600 MG, DAILY
     Route: 048
     Dates: start: 20091214, end: 20091214
  12. MORPHINE [Suspect]
     Indication: COUGH
  13. MORPHINE [Suspect]
     Indication: DYSPNOEA
  14. KLARICID [Concomitant]
     Indication: IDIOPATHIC PULMONARY FIBROSIS
     Dosage: 200 MG, DAILY
     Route: 048
  15. PIRESPA [Concomitant]
     Dosage: 200 MG, TID
     Route: 048
     Dates: start: 20090715, end: 20090728
  16. PIRESPA [Concomitant]
     Indication: IDIOPATHIC PULMONARY FIBROSIS
     Dosage: 600 MG, TID
     Route: 048
     Dates: start: 20091008, end: 20091217
  17. HOKUNALIN                          /00654902/ [Concomitant]
     Indication: IDIOPATHIC PULMONARY FIBROSIS
     Dosage: 0.5 MG, DAILY
     Route: 062
  18. FLOMOX [Concomitant]
     Dosage: 300 MG, DAILY
     Route: 048
     Dates: start: 20091211, end: 20091213

REACTIONS (3)
  - HEPATIC FUNCTION ABNORMAL [None]
  - PNEUMONIA [None]
  - ANAEMIA [None]
